FAERS Safety Report 7251061-6 (Version None)
Quarter: 2011Q1

REPORT INFORMATION
  Report Type: 
  Country: None (occurrence: None)
  Receive Date: 20110128
  Receipt Date: 20110126
  Transmission Date: 20110831
  Serious: Yes (Hospitalization, Other)
  Sender: FDA-Public Use
  Company Number: GR-AMGEN LTD.-QUU442316

PATIENT
  Age: 76 Year
  Sex: Female

DRUGS (4)
  1. NPLATE [Suspect]
     Indication: IDIOPATHIC THROMBOCYTOPENIC PURPURA
     Dosage: 2 A?G/KG, QWK
     Route: 058
     Dates: start: 20100329, end: 20100921
  2. CLOPIDOGREL BISULFATE [Concomitant]
  3. UNSPECIFIED ANTIDIABETIC AGENT [Concomitant]
  4. MEDROL [Concomitant]
     Dosage: 4 MG, QD
     Dates: start: 19990929

REACTIONS (4)
  - ERYTHEMA [None]
  - OEDEMA [None]
  - OSTEOARTHRITIS [None]
  - ARTHRITIS [None]
